FAERS Safety Report 16260732 (Version 2)
Quarter: 2019Q4

REPORT INFORMATION
  Report Type: Spontaneous
  Country: US (occurrence: US)
  Receive Date: 20190501
  Receipt Date: 20191212
  Transmission Date: 20200122
  Serious: Yes (Other)
  Sender: FDA-Public Use
  Company Number: US-PFIZER INC-2019181996

PATIENT
  Sex: Female

DRUGS (11)
  1. NAPROXEN. [Concomitant]
     Active Substance: NAPROXEN
     Dosage: UNK
  2. POLYETHYLENE GLYCOL [Concomitant]
     Active Substance: POLYETHYLENE GLYCOLS
     Dosage: 17 G, AS NEEDED (POWDER PACKET)
  3. LEXAPRO [Concomitant]
     Active Substance: ESCITALOPRAM OXALATE
     Dosage: 10 MG, 1X/DAY
  4. OXYCODONE [Concomitant]
     Active Substance: OXYCODONE
     Dosage: 80 MG, 1X/DAY
  5. TRAMADOL. [Concomitant]
     Active Substance: TRAMADOL
     Dosage: 50 MG, 2X/DAY
  6. INGREZZA [Concomitant]
     Active Substance: VALBENAZINE
     Dosage: 40 MG, DAILY
  7. SALONPAS PAIN RELIEF [Concomitant]
     Active Substance: MENTHOL\METHYL SALICYLATE
     Dosage: UNK
  8. CHANTIX [Suspect]
     Active Substance: VARENICLINE TARTRATE
     Dosage: UNK
     Dates: start: 201605
  9. OXYCODONE [Concomitant]
     Active Substance: OXYCODONE
     Dosage: 30 MG, 2X/DAY
  10. CHANTIX [Suspect]
     Active Substance: VARENICLINE TARTRATE
     Indication: SMOKING CESSATION THERAPY
     Dosage: UNK
     Dates: start: 2013
  11. INGREZZA [Concomitant]
     Active Substance: VALBENAZINE
     Dosage: 80 MG, 1X/DAY

REACTIONS (20)
  - Dystonia [Unknown]
  - Arthralgia [Unknown]
  - Cognitive disorder [Unknown]
  - Abdominal pain [Unknown]
  - Affective disorder [Unknown]
  - Intervertebral disc protrusion [Unknown]
  - Loss of personal independence in daily activities [Unknown]
  - Fatigue [Unknown]
  - Dyspnoea [Unknown]
  - Depression [Unknown]
  - Spondylitis [Unknown]
  - Gait disturbance [Unknown]
  - Bipolar disorder [Unknown]
  - Spinal pain [Unknown]
  - Movement disorder [Not Recovered/Not Resolved]
  - Myoclonus [Unknown]
  - Cervical spinal stenosis [Unknown]
  - Muscle spasms [Unknown]
  - Anxiety [Unknown]
  - Frustration tolerance decreased [Unknown]
